FAERS Safety Report 7247195-2 (Version None)
Quarter: 2011Q1

REPORT INFORMATION
  Report Type: 
  Country: None (occurrence: None)
  Receive Date: 20110127
  Receipt Date: 20110120
  Transmission Date: 20110831
  Serious: Yes (Hospitalization)
  Sender: FDA-Public Use
  Company Number: US-JNJFOC-20110105919

PATIENT
  Sex: Female
  Weight: 40.2 kg

DRUGS (6)
  1. REMICADE [Suspect]
     Indication: CROHN'S DISEASE
     Route: 042
  2. MESALAMINE [Concomitant]
     Route: 048
  3. PREDNISONE [Concomitant]
  4. HUMIRA [Concomitant]
     Indication: CROHN'S DISEASE
  5. HYDROCORTISONE [Concomitant]
  6. HUMIRA [Concomitant]

REACTIONS (1)
  - CROHN'S DISEASE [None]
